FAERS Safety Report 6525405-4 (Version None)
Quarter: 2010Q1

REPORT INFORMATION
  Report Type: 
  Country: None (occurrence: None)
  Receive Date: 20100104
  Receipt Date: 20091126
  Transmission Date: 20100710
  Serious: Yes (Hospitalization)
  Sender: FDA-Public Use
  Company Number: JP-JNJCH-2009025516

PATIENT
  Sex: Female

DRUGS (7)
  1. CETIRIZINE HYDROCHLORIDE [Suspect]
     Indication: ECZEMA
     Dosage: TEXT:10 MG BID
     Route: 048
     Dates: start: 20090827, end: 20090904
  2. HYDROXYZINE PAMOATE [Suspect]
     Dosage: TEXT:25 MG
     Route: 048
  3. ZOLPIDEM TARTRATE [Suspect]
     Dosage: TEXT:5 MG
     Route: 048
  4. FEXOFENADINE HCL [Suspect]
     Indication: DRUG USE FOR UNKNOWN INDICATION
     Dosage: TEXT:60 MG
     Route: 048
  5. FAMOTIDINE [Suspect]
     Dosage: TEXT:NI
     Route: 042
  6. PHENOBARBITAL [Concomitant]
  7. BETAMETHASONE [Concomitant]
     Dates: start: 20090905

REACTIONS (2)
  - HEPATITIS [None]
  - PYREXIA [None]
